FAERS Safety Report 11939376 (Version 1)
Quarter: 2016Q1

REPORT INFORMATION
  Report Type: Spontaneous
  Country: US (occurrence: US)
  Receive Date: 20160122
  Receipt Date: 20160122
  Transmission Date: 20160526
  Serious: Yes (Other)
  Sender: FDA-Public Use
  Company Number: US-PFIZER INC-2016021629

PATIENT
  Age: 60 Year
  Sex: Female

DRUGS (2)
  1. CHLORAMPHENICOL [Suspect]
     Active Substance: CHLORAMPHENICOL
     Dosage: 6 G, DAILY
     Route: 048
  2. CHLORAMPHENICOL [Suspect]
     Active Substance: CHLORAMPHENICOL
     Indication: PLASMA CELL MYELOMA
     Dosage: 8 G, DAILY
     Route: 048

REACTIONS (3)
  - Encephalopathy [Recovered/Resolved]
  - Abnormal dreams [Unknown]
  - Depersonalisation/derealisation disorder [Unknown]
